FAERS Safety Report 24672909 (Version 2)
Quarter: 2024Q4

REPORT INFORMATION
  Report Type: Report from Study
  Country: CO (occurrence: CO)
  Receive Date: 20241128
  Receipt Date: 20241220
  Transmission Date: 20250115
  Serious: Yes (Hospitalization)
  Sender: ABBVIE
  Company Number: CO-ABBVIE-6021739

PATIENT
  Age: 55 Year
  Sex: Male
  Weight: 68 kg

DRUGS (1)
  1. SKYRIZI [Suspect]
     Active Substance: RISANKIZUMAB-RZAA
     Indication: Psoriasis
     Dosage: FORM STRENGTH: 150 MILLIGRAMS
     Route: 058
     Dates: start: 20240821, end: 20240821

REACTIONS (6)
  - Urinary tract infection [Recovered/Resolved]
  - Platelet count decreased [Recovered/Resolved]
  - Cough [Recovering/Resolving]
  - Pyrexia [Recovering/Resolving]
  - Depressed mood [Recovering/Resolving]
  - Decreased appetite [Recovering/Resolving]

NARRATIVE: CASE EVENT DATE: 20241117
